FAERS Safety Report 7790675-1 (Version None)
Quarter: 2011Q3

REPORT INFORMATION
  Report Type: 
  Country: None (occurrence: None)
  Receive Date: 20110930
  Receipt Date: 20110920
  Transmission Date: 20111222
  Serious: Yes (Other)
  Sender: FDA-Public Use
  Company Number: BR-US-EMD SERONO, INC.-7079170

PATIENT
  Sex: Female

DRUGS (3)
  1. NEUROLEPTIL [Concomitant]
  2. TYLENOL-500 [Concomitant]
     Indication: PRODUCT USED FOR UNKNOWN INDICATION
  3. REBIF [Suspect]
     Indication: PRODUCT USED FOR UNKNOWN INDICATION
     Dates: start: 20110125

REACTIONS (5)
  - DEPRESSED MOOD [None]
  - ABDOMINAL PAIN [None]
  - BREAST MASS [None]
  - ENDOMETRIAL DISORDER [None]
  - PAIN [None]
